FAERS Safety Report 8701701 (Version 2)
Quarter: 2013Q4

REPORT INFORMATION
  Report Type: Spontaneous
  Country: FR (occurrence: FR)
  Receive Date: 20120803
  Receipt Date: 20131031
  Transmission Date: 20140711
  Serious: Yes (Other)
  Sender: FDA-Public Use
  Company Number: FR-009507513-1208FRA000204

PATIENT
  Age: 33 Year
  Sex: Female

DRUGS (2)
  1. IMPLANON [Suspect]
     Indication: PRODUCT USED FOR UNKNOWN INDICATION
     Dosage: 1 DF, UNK
     Dates: start: 20081005, end: 20111005
  2. LAMICTAL [Concomitant]
     Indication: EPILEPSY

REACTIONS (1)
  - Condition aggravated [Not Recovered/Not Resolved]
